FAERS Safety Report 8270400-0 (Version None)
Quarter: 2012Q2

REPORT INFORMATION
  Report Type: 
  Country: None (occurrence: None)
  Receive Date: 20120410
  Receipt Date: 20120405
  Transmission Date: 20120825
  Serious: No
  Sender: FDA-Public Use
  Company Number: US-BAYER-2012-034221

PATIENT
  Sex: Female

DRUGS (1)
  1. ALEVE (CAPLET) [Suspect]
     Dosage: 1 U, QD
     Route: 048
     Dates: start: 20120403, end: 20120403

REACTIONS (2)
  - BURNING SENSATION [None]
  - FOREIGN BODY [None]
